FAERS Safety Report 7681708 (Version 2)
Quarter: 2014Q1

REPORT INFORMATION
  Report Type: Spontaneous
  Country: AU (occurrence: AU)
  Receive Date: 20101124
  Receipt Date: 20140106
  Transmission Date: 20141002
  Serious: Yes (Other)
  Sender: FDA-Public Use
  Company Number: AU-JNJFOC-20101106928

PATIENT
  Age: 34 Year
  Sex: Male

DRUGS (4)
  1. DUROGESIC [Suspect]
     Indication: FOOT FRACTURE
     Route: 062
  2. DUROGESIC [Suspect]
     Indication: FOOT FRACTURE
     Route: 062
  3. DUROGESIC [Suspect]
     Indication: FOOT FRACTURE
     Route: 062
     Dates: start: 20101109
  4. TRAMADOL [Concomitant]
     Route: 065

REACTIONS (5)
  - Urinary retention [Recovered/Resolved]
  - Migraine [Recovered/Resolved]
  - Wrong technique in drug usage process [Unknown]
  - Product quality issue [Unknown]
  - Product quality issue [Unknown]
